FAERS Safety Report 4994431-9 (Version None)
Quarter: 2006Q1

REPORT INFORMATION
  Report Type: 
  Country: None (occurrence: None)
  Receive Date: 20060313
  Receipt Date: 20051108
  Transmission Date: 20060701
  Serious: No
  Sender: FDA-Public Use
  Company Number: 2005-BP-19578BP

PATIENT
  Sex: Female

DRUGS (3)
  1. SPIRIVA [Suspect]
     Indication: CHRONIC OBSTRUCTIVE PULMONARY DISEASE
     Dosage: 18 MCG (18 MCG, 1 IN 1 D) IH
     Route: 055
     Dates: start: 20051018, end: 20051104
  2. SPIRIVA [Suspect]
     Indication: CHRONIC OBSTRUCTIVE PULMONARY DISEASE
     Dosage: 18 MCG (18 MCG, 1 IN 1 D) IH
     Route: 055
     Dates: start: 20051108
  3. THEOPHYLLINE [Concomitant]

REACTIONS (8)
  - DRY MOUTH [None]
  - GINGIVAL PAIN [None]
  - GLOSSODYNIA [None]
  - HAEMOPTYSIS [None]
  - ORAL CANDIDIASIS [None]
  - TONGUE DISCOLOURATION [None]
  - VISION BLURRED [None]
  - WEIGHT DECREASED [None]
